FAERS Safety Report 19553056 (Version 3)
Quarter: 2021Q4

REPORT INFORMATION
  Report Type: Spontaneous
  Country: US (occurrence: US)
  Receive Date: 20210714
  Receipt Date: 20211015
  Transmission Date: 20220303
  Serious: Yes (Other)
  Sender: FDA-Public Use
  Company Number: US-SA-SAC20210712001310

PATIENT
  Age: 32 Year
  Sex: Male

DRUGS (1)
  1. AUBAGIO [Suspect]
     Active Substance: TERIFLUNOMIDE
     Indication: Multiple sclerosis
     Dosage: 14 MG, QD
     Route: 048
     Dates: start: 20210611

REACTIONS (9)
  - Multiple sclerosis relapse [Unknown]
  - Multiple sclerosis [Unknown]
  - Stress [Unknown]
  - Feeling abnormal [Unknown]
  - Anxiety [Unknown]
  - Hallucination, visual [Unknown]
  - Neck pain [Unknown]
  - Back pain [Unknown]
  - Headache [Unknown]

NARRATIVE: CASE EVENT DATE: 20210101
